FAERS Safety Report 8836103 (Version 3)
Quarter: 2012Q4

REPORT INFORMATION
  Report Type: 
  Country: US (occurrence: US)
  Receive Date: 20121011
  Receipt Date: 20121217
  Transmission Date: 20130627
  Serious: Yes (Other)
  Sender: FDA-Public Use
  Company Number: US-JNJFOC-20121005531

PATIENT
  Age: 66 Year
  Sex: Male
  Weight: 102.97 kg

DRUGS (2)
  1. NEUTROGENA T/GEL THERAPEUTIC [Suspect]
     Indication: PRODUCT USED FOR UNKNOWN INDICATION
     Dosage: couple ounces every other day
     Route: 061
     Dates: start: 20121006, end: 20121006
  2. DEPAKOTE [Concomitant]
     Indication: CONVULSION
     Dosage: started 5 years ago; 6 day 500mgs
     Route: 065
     Dates: start: 2007

REACTIONS (3)
  - Grand mal convulsion [Recovered/Resolved]
  - Loss of consciousness [Recovered/Resolved]
  - Product quality issue [Unknown]
